FAERS Safety Report 5704628-8 (Version None)
Quarter: 2008Q2

REPORT INFORMATION
  Report Type: 
  Country: None (occurrence: None)
  Receive Date: 20080414
  Receipt Date: 20080407
  Transmission Date: 20081010
  Serious: Yes (Other)
  Sender: FDA-Public Use
  Company Number: FR-ASTRAZENECA-2008CG00531

PATIENT
  Age: 30 Year
  Sex: Female

DRUGS (5)
  1. ATACAND [Suspect]
     Indication: HYPERTENSION
     Route: 048
     Dates: start: 20071221, end: 20080105
  2. ATACAND [Suspect]
     Route: 048
     Dates: start: 20080105
  3. TRANDATE [Concomitant]
     Indication: HYPERTENSION
     Route: 048
  4. TRANDATE [Concomitant]
     Dates: start: 20070705
  5. DETENSIEL [Concomitant]
     Indication: HYPERTENSION
     Route: 048
     Dates: end: 20070705

REACTIONS (2)
  - DRUG EXPOSURE DURING PREGNANCY [None]
  - INTRA-UTERINE DEATH [None]
